FAERS Safety Report 8169094-4 (Version None)
Quarter: 2012Q1

REPORT INFORMATION
  Report Type: 
  Country: None (occurrence: None)
  Receive Date: 20120227
  Receipt Date: 20120216
  Transmission Date: 20120608
  Serious: Yes (Hospitalization)
  Sender: FDA-Public Use
  Company Number: FR-ASTRAZENECA-2012SE11187

PATIENT
  Sex: Female

DRUGS (3)
  1. QUETIAPINE FUMARATE [Suspect]
     Route: 048
     Dates: start: 20120101
  2. FLUVOXAMIN [Concomitant]
     Route: 048
     Dates: start: 20120126
  3. QUETIAPINE FUMARATE [Suspect]
     Indication: BIPOLAR I DISORDER
     Dosage: DOSE PROGRESSIVELY INCREASE FROM 50 MG TO 300 MG PER DAY
     Route: 048
     Dates: start: 20120101

REACTIONS (3)
  - DERMATITIS BULLOUS [None]
  - ERYTHEMA [None]
  - SEDATION [None]
